FAERS Safety Report 22308178 (Version 1)
Quarter: 2023Q2

REPORT INFORMATION
  Report Type: Spontaneous
  Country: US (occurrence: US)
  Receive Date: 20230511
  Receipt Date: 20230511
  Transmission Date: 20230721
  Serious: No
  Sender: FDA-Public Use
  Company Number: US-APOTEX-2023AP005599

PATIENT
  Age: 75 Year
  Sex: Male

DRUGS (2)
  1. DOXYCYCLINE [Suspect]
     Active Substance: DOXYCYCLINE
     Indication: Arthropod bite
     Dosage: 100 MILLIGRAM, BID
     Route: 048
     Dates: start: 2019
  2. RITUXIMAB [Concomitant]
     Active Substance: RITUXIMAB
     Indication: Follicular lymphoma
     Dosage: UNK, MAINTENANCE THERAPY
     Route: 065

REACTIONS (1)
  - Jarisch-Herxheimer reaction [Recovered/Resolved]
